FAERS Safety Report 14938107 (Version 1)
Quarter: 2018Q2

REPORT INFORMATION
  Report Type: Spontaneous
  Country: GB (occurrence: GB)
  Receive Date: 20180525
  Receipt Date: 20180525
  Transmission Date: 20180711
  Serious: Yes (Other)
  Sender: FDA-Public Use
  Company Number: GB-TEVA-2018-GB-897471

PATIENT
  Age: 55 Year
  Sex: Male
  Weight: 93 kg

DRUGS (5)
  1. NAPROXEN. [Suspect]
     Active Substance: NAPROXEN
     Indication: ILL-DEFINED DISORDER
     Route: 065
     Dates: start: 20180214
  2. COLCHICINE. [Concomitant]
     Active Substance: COLCHICINE
     Dosage: ONE TO BE TAKEN 2-4 TIMES A DAY UNTIL SYMPTOMS RELIEVED, MAXIMUM OF 12 TABLETS PER COURSE.
     Route: 065
     Dates: start: 20180315
  3. INDAPAMIDE. [Concomitant]
     Active Substance: INDAPAMIDE
     Indication: HYPERTENSION
     Dosage: 1 DOSAGE FORMS DAILY; MORNING
     Route: 065
     Dates: start: 20171130
  4. PREDNISOLONE. [Concomitant]
     Active Substance: PREDNISOLONE
     Dosage: 6 DOSAGE FORMS DAILY;
     Route: 065
     Dates: start: 20180223, end: 20180302
  5. LERCANIDIPINE HYDROCHLORIDE [Concomitant]
     Active Substance: LERCANIDIPINE HYDROCHLORIDE
     Indication: HYPERTENSION
     Dosage: 1 DOSAGE FORMS DAILY;
     Route: 065
     Dates: start: 20171024

REACTIONS (2)
  - Dermatitis bullous [Recovered/Resolved]
  - Rash vesicular [Unknown]

NARRATIVE: CASE EVENT DATE: 20180214
